FAERS Safety Report 14300658 (Version 1)
Quarter: 2017Q4

REPORT INFORMATION
  Report Type: Spontaneous
  Country: US (occurrence: US)
  Receive Date: 20171219
  Receipt Date: 20171219
  Transmission Date: 20180321
  Serious: Yes (Death, Hospitalization)
  Sender: FDA-Public Use
  Company Number: US-BAYER-2017-239543

PATIENT
  Age: 13 Month
  Sex: Male

DRUGS (1)
  1. ACETYLSALICYLIC ACID (} 100 MG) [Suspect]
     Active Substance: ASPIRIN
     Route: 048

REACTIONS (4)
  - Generalised tonic-clonic seizure [None]
  - Toxicity to various agents [Fatal]
  - Accidental overdose [Fatal]
  - Drug administration error [Fatal]
